FAERS Safety Report 7312719-3 (Version None)
Quarter: 2011Q1

REPORT INFORMATION
  Report Type: 
  Country: None (occurrence: None)
  Receive Date: 20110224
  Receipt Date: 20110124
  Transmission Date: 20110831
  Serious: Yes (Hospitalization, Other)
  Sender: FDA-Public Use
  Company Number: PHFR2010GB02478

PATIENT
  Sex: Female

DRUGS (13)
  1. LITHIUM CARBONATE [Suspect]
     Dosage: 3000MG
  2. GLICLAZIDE [Concomitant]
     Indication: DIABETES MELLITUS
     Dosage: 40 MG, UNK
     Route: 048
     Dates: start: 20101116
  3. CLOZARIL [Suspect]
     Indication: SCHIZOPHRENIA
     Dosage: UNK
     Route: 048
     Dates: start: 20060406
  4. CLOZARIL [Suspect]
     Dosage: 1300 MG
  5. AMISULPRIDE [Suspect]
     Dosage: 1200 MG, UNK
  6. RAMIPRIL [Concomitant]
     Indication: HYPERTENSION
     Dosage: 10 MG, UNK
     Dates: start: 20100901
  7. ARIPIPRAZOLE [Concomitant]
     Indication: SCHIZOPHRENIA
     Dosage: 15 MG, UNK
     Route: 048
     Dates: start: 20101001
  8. VALPROATE SODIUM [Concomitant]
     Indication: AFFECTIVE DISORDER
     Dosage: 1 G, UNK
     Route: 048
  9. LEVOTHYROXINE SODIUM [Concomitant]
     Indication: HYPOTHYROIDISM
     Dosage: 75 MG, UNK
  10. LITHIUM CARBONATE [Suspect]
     Dosage: UNK DF, UNK
  11. METFORMIN [Concomitant]
     Indication: DIABETES MELLITUS
     Dosage: 1.7 G, UNK
     Route: 048
     Dates: start: 20100901
  12. OLANZAPINE [Concomitant]
     Indication: SCHIZOPHRENIA
     Dosage: 5 MG, TID PRN
     Route: 048
  13. ESCITALOPRAM [Concomitant]
     Indication: DEPRESSION
     Dosage: 20 MG, UNK
     Route: 048

REACTIONS (7)
  - ELECTROCARDIOGRAM QT PROLONGED [None]
  - HALLUCINATION, VISUAL [None]
  - HYPERTENSION [None]
  - ELECTROCARDIOGRAM T WAVE INVERSION [None]
  - OVERDOSE [None]
  - MULTIPLE DRUG OVERDOSE [None]
  - SCHIZOPHRENIA [None]
